FAERS Safety Report 4921418-4 (Version None)
Quarter: 2006Q1

REPORT INFORMATION
  Report Type: 
  Country: None (occurrence: None)
  Receive Date: 20060224
  Receipt Date: 20030626
  Transmission Date: 20060701
  Serious: Yes (Life-Threatening, Hospitalization)
  Sender: FDA-Public Use
  Company Number: PHBS2003US06911

PATIENT
  Age: 48 Year
  Sex: Male

DRUGS (8)
  1. METOPROLOL [Suspect]
     Indication: HYPERTENSION
     Dosage: 100 MG/DAY
  2. ACETAMINOPHEN W/ PROPOXYPHENE HCL [Suspect]
     Indication: HERNIA REPAIR
     Dosage: 1300 MG/DAY
     Route: 048
  3. DILTIAZEM HCL [Concomitant]
     Dosage: 240 MG/DAY
  4. ATORVASTATIN CALCIUM [Concomitant]
     Indication: HYPERLIPIDAEMIA
     Dosage: 20 MG/DAY
  5. LEVOTHYROXINE SODIUM [Concomitant]
     Indication: HYPOTHYROIDISM
     Dosage: 0.075 MG/DAY
  6. FOSINOPRIL SODIUM [Concomitant]
     Indication: HYPERTENSION
     Dosage: 40 MG/DAY
  7. AMITRIPTYLINE HCL [Concomitant]
     Indication: SLEEP DISORDER
     Dosage: 25 MG/DAY
  8. WARFARIN SODIUM [Suspect]

REACTIONS (6)
  - ATRIAL FIBRILLATION [None]
  - BRADYCARDIA [None]
  - DIZZINESS [None]
  - DRUG INTERACTION [None]
  - HEART RATE DECREASED [None]
  - HYPERHIDROSIS [None]
